FAERS Safety Report 21246368 (Version 1)
Quarter: 2022Q3

REPORT INFORMATION
  Report Type: Spontaneous
  Country: US (occurrence: US)
  Receive Date: 20220824
  Receipt Date: 20220824
  Transmission Date: 20221027
  Serious: No
  Sender: FDA-Public Use
  Company Number: US-AUROBINDO-AUR-APL-2022-004399

PATIENT
  Sex: Female

DRUGS (2)
  1. AZITHROMYCIN [Suspect]
     Active Substance: AZITHROMYCIN
     Indication: Sinusitis
     Dosage: 2 DOSAGE FORM, ONCE A DAY (2 TABS ON DAY 1 AND 1 TAB DAILY FOR THE NEXT 5 DAYS)
     Route: 065
  2. AZITHROMYCIN [Suspect]
     Active Substance: AZITHROMYCIN
     Dosage: 1 DOSAGE FORM, DAILY (2 TABS ON DAY 1 AND 1 TAB DAILY FOR THE NEXT 5 DAYS)
     Route: 065

REACTIONS (1)
  - Drug ineffective [Unknown]
